FAERS Safety Report 4289672-2 (Version None)
Quarter: 2004Q1

REPORT INFORMATION
  Report Type: 
  Country: None (occurrence: None)
  Receive Date: 20040206
  Receipt Date: 20040126
  Transmission Date: 20041129
  Serious: Yes (Hospitalization)
  Sender: FDA-Public Use
  Company Number: K200400109

PATIENT
  Age: 38 Year
  Sex: 0

DRUGS (1)
  1. SEPTRA [Suspect]
     Indication: PNEUMOCYSTIS CARINII PNEUMONIA
     Dosage: 160/800 MG, Q 6 HOURS, INTRAVENOUS
     Route: 042

REACTIONS (9)
  - BLOOD CHLORIDE INCREASED [None]
  - BLOOD CREATININE DECREASED [None]
  - BLOOD SODIUM DECREASED [None]
  - CONFUSIONAL STATE [None]
  - HYPERHIDROSIS [None]
  - METABOLIC ACIDOSIS [None]
  - RENAL TUBULAR ACIDOSIS [None]
  - RESPIRATORY ALKALOSIS [None]
  - TACHYPNOEA [None]
